FAERS Safety Report 22591158 (Version 4)
Quarter: 2023Q4

REPORT INFORMATION
  Report Type: Spontaneous
  Country: US (occurrence: US)
  Receive Date: 20230612
  Receipt Date: 20231218
  Transmission Date: 20240109
  Serious: No
  Sender: FDA-Public Use
  Company Number: US-PFIZER INC-202200016831

PATIENT
  Age: 70 Year

DRUGS (2)
  1. PREMARIN [Suspect]
     Active Substance: ESTROGENS, CONJUGATED
     Dosage: STRENGTH: 0.625 MG, 0.625 MG, 2X/WEEK
     Route: 048
  2. PREMARIN [Suspect]
     Active Substance: ESTROGENS, CONJUGATED
     Dosage: 0.3 MG, WEEKLY [1 TABLET DAILY FIVE TIMES A WEEK 90 DAYS]
     Route: 048

REACTIONS (3)
  - Off label use [Unknown]
  - Anxiety [Unknown]
  - Hypoacusis [Unknown]
